FAERS Safety Report 21140365 (Version 1)
Quarter: 2022Q3

REPORT INFORMATION
  Report Type: Spontaneous
  Country: AU (occurrence: AU)
  Receive Date: 20220728
  Receipt Date: 20220728
  Transmission Date: 20221027
  Serious: Yes (Other)
  Sender: FDA-Public Use
  Company Number: AU-AMGEN-AUSSP2022125276

PATIENT
  Age: 4 Year
  Sex: Male

DRUGS (4)
  1. DARBEPOETIN ALFA [Suspect]
     Active Substance: DARBEPOETIN ALFA
     Indication: End stage renal disease
     Dosage: 20 MICROGRAM, QWK
     Route: 065
  2. CALCIUM CARBONATE [Concomitant]
     Active Substance: CALCIUM CARBONATE
     Dosage: 600 MILLIGRAM, QD
     Route: 065
  3. IRON [Concomitant]
     Active Substance: IRON
     Dosage: 30 MILLIGRAM, QD
  4. SODIUM CHLORIDE [Concomitant]
     Active Substance: SODIUM CHLORIDE
     Dosage: 45 MMOL/D

REACTIONS (10)
  - Renal impairment [Unknown]
  - Acute kidney injury [Unknown]
  - Hypokalaemia [Unknown]
  - Hypochloraemia [Unknown]
  - Hypophosphataemia [Unknown]
  - Hypercalcaemia [Unknown]
  - Blood parathyroid hormone decreased [Unknown]
  - Vitamin D increased [Unknown]
  - Blood bicarbonate increased [Unknown]
  - Alkalosis [Unknown]
